FAERS Safety Report 25213885 (Version 1)
Quarter: 2025Q2

REPORT INFORMATION
  Report Type: Report from Study
  Country: US (occurrence: US)
  Receive Date: 20250418
  Receipt Date: 20250418
  Transmission Date: 20250716
  Serious: Yes (Death)
  Sender: PFIZER
  Company Number: US-PFIZER INC-PV202500043132

PATIENT
  Age: 6 Decade
  Sex: Female

DRUGS (1)
  1. TALAZOPARIB [Suspect]
     Active Substance: TALAZOPARIB
     Indication: Breast cancer metastatic

REACTIONS (2)
  - Second primary malignancy [Fatal]
  - Acute myeloid leukaemia [Fatal]
